FAERS Safety Report 23688916 (Version 2)
Quarter: 2024Q4

REPORT INFORMATION
  Report Type: Spontaneous
  Country: US (occurrence: US)
  Receive Date: 20240329
  Receipt Date: 20241014
  Transmission Date: 20250114
  Serious: No
  Sender: ABBVIE
  Company Number: US-ABBVIE-5696841

PATIENT
  Sex: Female
  Weight: 65 kg

DRUGS (2)
  1. QULIPTA [Suspect]
     Active Substance: ATOGEPANT
     Indication: Migraine
     Dosage: FORM STRENGTH: 60 MILLIGRAM
     Route: 048
  2. QULIPTA [Suspect]
     Active Substance: ATOGEPANT
     Indication: Migraine
     Route: 048

REACTIONS (5)
  - Rectal tenesmus [Unknown]
  - Faeces hard [Unknown]
  - Abdominal distension [Unknown]
  - Gastrointestinal motility disorder [Unknown]
  - Constipation [Recovered/Resolved]
